FAERS Safety Report 5221075-6 (Version None)
Quarter: 2007Q1

REPORT INFORMATION
  Report Type: 
  Country: None (occurrence: None)
  Receive Date: 20070126
  Receipt Date: 20070117
  Transmission Date: 20070707
  Serious: Yes (Hospitalization)
  Sender: FDA-Public Use
  Company Number: GB-GLAXOSMITHKLINE-B0454456A

PATIENT
  Sex: Female

DRUGS (1)
  1. NIQUITIN CQ GUM 4MG [Suspect]
     Route: 065

REACTIONS (1)
  - VOMITING [None]
